FAERS Safety Report 24154615 (Version 24)
Quarter: 2025Q2

REPORT INFORMATION
  Report Type: Spontaneous
  Country: JP (occurrence: JP)
  Receive Date: 20240731
  Receipt Date: 20250508
  Transmission Date: 20250716
  Serious: Yes (Hospitalization, Other)
  Sender: JOHNSON AND JOHNSON
  Company Number: JP-JNJFOC-20240773333

PATIENT
  Age: 59 Year
  Sex: Male
  Weight: 71.8 kg

DRUGS (16)
  1. OPSUMIT [Suspect]
     Active Substance: MACITENTAN
     Indication: Pulmonary arterial hypertension
     Route: 048
     Dates: start: 20240529
  2. SELEXIPAG [Suspect]
     Active Substance: SELEXIPAG
     Indication: Pulmonary arterial hypertension
     Route: 048
     Dates: start: 20240613, end: 2024
  3. SELEXIPAG [Suspect]
     Active Substance: SELEXIPAG
     Indication: Mixed connective tissue disease
     Route: 048
     Dates: start: 2024, end: 2024
  4. SELEXIPAG [Suspect]
     Active Substance: SELEXIPAG
     Indication: Pulmonary arterial hypertension
     Dosage: DOSE UNKNOWN, DECREASED
     Route: 048
  5. SELEXIPAG [Suspect]
     Active Substance: SELEXIPAG
     Route: 048
     Dates: start: 20240613
  6. SELEXIPAG [Suspect]
     Active Substance: SELEXIPAG
     Route: 048
  7. SELEXIPAG [Suspect]
     Active Substance: SELEXIPAG
     Route: 048
  8. AZOSEMIDE [Suspect]
     Active Substance: AZOSEMIDE
     Indication: Right ventricular failure
     Route: 048
     Dates: start: 20240527, end: 20240625
  9. AZOSEMIDE [Suspect]
     Active Substance: AZOSEMIDE
     Indication: Oedema due to cardiac disease
     Route: 048
     Dates: start: 20240625
  10. OLMESARTAN [Suspect]
     Active Substance: OLMESARTAN
     Indication: Nephroprotective therapy
     Route: 048
     Dates: start: 20240608, end: 20240625
  11. OLMESARTAN [Suspect]
     Active Substance: OLMESARTAN
     Indication: Hypertension
  12. ADCIRCA [Suspect]
     Active Substance: TADALAFIL
     Indication: Pulmonary arterial hypertension
     Route: 048
     Dates: start: 20240510, end: 20240625
  13. ADCIRCA [Suspect]
     Active Substance: TADALAFIL
     Indication: Pulmonary arterial hypertension
     Route: 048
     Dates: start: 20240625
  14. ADCIRCA [Suspect]
     Active Substance: TADALAFIL
     Indication: Mixed connective tissue disease
  15. LOKELMA [Concomitant]
     Active Substance: SODIUM ZIRCONIUM CYCLOSILICATE
     Indication: Renal impairment
     Dosage: 30 G/15 G
     Route: 048
     Dates: start: 20240625
  16. CALCIUM GLUCONATE [Concomitant]
     Active Substance: CALCIUM GLUCONATE
     Indication: Product used for unknown indication
     Route: 065
     Dates: start: 20240625

REACTIONS (19)
  - Renal impairment [Recovered/Resolved]
  - Hyperkalaemia [Recovered/Resolved]
  - Loss of consciousness [Recovered/Resolved]
  - Hospitalisation [Unknown]
  - Hypotension [Recovered/Resolved]
  - Dehydration [Recovered/Resolved]
  - Oedema peripheral [Recovered/Resolved]
  - Arthralgia [Not Recovered/Not Resolved]
  - Arthralgia [Not Recovered/Not Resolved]
  - Arthralgia [Not Recovered/Not Resolved]
  - Arthralgia [Not Recovered/Not Resolved]
  - Hypoaesthesia [Recovered/Resolved]
  - Blood pressure decreased [Recovered/Resolved]
  - Blood pressure decreased [Recovered/Resolved]
  - Coronavirus infection [Recovered/Resolved]
  - Fall [Recovered/Resolved]
  - Contusion [Recovered/Resolved]
  - Neck pain [Not Recovered/Not Resolved]
  - Pyrexia [Recovered/Resolved]

NARRATIVE: CASE EVENT DATE: 20240101
